FAERS Safety Report 22651778 (Version 1)
Quarter: 2023Q2

REPORT INFORMATION
  Report Type: Spontaneous
  Country: US (occurrence: US)
  Receive Date: 20230628
  Receipt Date: 20230628
  Transmission Date: 20230722
  Serious: No
  Sender: FDA-Public Use
  Company Number: US-CTI BIOPHARMA-2023US03595

PATIENT

DRUGS (11)
  1. VONJO [Suspect]
     Active Substance: PACRITINIB
     Indication: Thrombocytopenia
     Dosage: 200 MG, BID
     Route: 048
     Dates: start: 20221013
  2. DAILY VITE [COLECALCIFEROL;CYANOCOBALAMIN;ERGOCALCIFEROL;NICOTINAMIDE; [Concomitant]
  3. TYLENOL [Concomitant]
     Active Substance: ACETAMINOPHEN
  4. FUROSEMIDE [Concomitant]
     Active Substance: FUROSEMIDE
  5. JAKAFI [Concomitant]
     Active Substance: RUXOLITINIB
  6. LOSARTAN [Concomitant]
     Active Substance: LOSARTAN
  7. METOPROLOL [Concomitant]
     Active Substance: METOPROLOL
  8. PREDNISONE [Concomitant]
     Active Substance: PREDNISONE
  9. SEVELAMER [Concomitant]
     Active Substance: SEVELAMER
  10. ALLOPURINOL [Concomitant]
     Active Substance: ALLOPURINOL
  11. CLONIDINE [Concomitant]
     Active Substance: CLONIDINE

REACTIONS (2)
  - Fatigue [Recovered/Resolved]
  - Off label use [Unknown]
